FAERS Safety Report 6760961-2 (Version None)
Quarter: 2010Q2

REPORT INFORMATION
  Report Type: 
  Country: None (occurrence: None)
  Receive Date: 20100608
  Receipt Date: 20100526
  Transmission Date: 20101027
  Serious: Yes (Other)
  Sender: FDA-Public Use
  Company Number: GR-JNJFOC-20091204439

PATIENT
  Age: 29 Year
  Sex: Female

DRUGS (5)
  1. STELARA [Suspect]
     Indication: PSORIASIS
     Route: 058
  2. STELARA [Suspect]
     Route: 058
  3. STELARA [Suspect]
     Route: 058
  4. T4 [Concomitant]
     Indication: THYROID DISORDER
     Route: 048
  5. ENGERIX-B [Concomitant]
     Indication: HEPATITIS B

REACTIONS (10)
  - ASTHENIA [None]
  - CATABOLIC STATE [None]
  - CHILLS [None]
  - DIZZINESS [None]
  - HYPERHIDROSIS [None]
  - MALAISE [None]
  - SOMNOLENCE [None]
  - SYNCOPE [None]
  - TACHYCARDIA [None]
  - VERTIGO [None]
